FAERS Safety Report 7784958-9 (Version None)
Quarter: 2011Q3

REPORT INFORMATION
  Report Type: 
  Country: None (occurrence: None)
  Receive Date: 20110928
  Receipt Date: 20110921
  Transmission Date: 20111222
  Serious: Yes (Hospitalization, Other)
  Sender: FDA-Public Use
  Company Number: US-RB-020621-11

PATIENT
  Sex: Female

DRUGS (12)
  1. SUBOXONE [Suspect]
     Indication: DRUG DEPENDENCE
     Dosage: 8 MG TWO TO FOUR TIMES DAILY
     Route: 060
     Dates: start: 20020101, end: 20110101
  2. ATIVAN [Concomitant]
     Indication: PARANOIA
     Dosage: DOSING INFORMATION UNKNOWN
     Route: 065
  3. ELAVIL [Concomitant]
     Indication: AFFECTIVE DISORDER
     Dosage: DOSING INFORMATION UNKNOWN
     Route: 065
  4. SUBOXONE [Suspect]
     Indication: DRUG DEPENDENCE
     Dosage: SUBLINGUAL FILM
     Route: 060
     Dates: start: 20110101
  5. ATIVAN [Concomitant]
     Indication: COMPULSIONS
     Dosage: DOSING INFORMATION UNKNOWN
     Route: 065
  6. LAMICTAL [Concomitant]
     Indication: COMPULSIONS
     Dosage: 25 MG DAILY
     Route: 065
     Dates: start: 20101201
  7. ATIVAN [Concomitant]
     Indication: AFFECTIVE DISORDER
     Dosage: DOSING INFORMATION UNKNOWN
     Route: 065
  8. HALDOL [Concomitant]
     Indication: PARANOIA
     Dosage: DOSING INFORMATION UNKNOWN
     Route: 065
  9. HALDOL [Concomitant]
     Indication: COMPULSIONS
     Dosage: DOSING INFORMATION UNKNOWN
     Route: 065
  10. LITHIUM [Concomitant]
     Indication: COMPULSIONS
     Dosage: DOSING INFORMATION UNKNOWN
     Route: 065
     Dates: end: 20101201
  11. LITHIUM [Concomitant]
     Indication: PARANOIA
     Dosage: DOSING INFORMATION UNKNOWN
     Route: 065
     Dates: end: 20101201
  12. ELAVIL [Concomitant]
     Indication: COMPULSIONS
     Dosage: DOSING INFORMATION UNKNOWN
     Route: 065

REACTIONS (17)
  - DRUG WITHDRAWAL SYNDROME [None]
  - STRESS [None]
  - HALLUCINATION [None]
  - PRURITUS GENERALISED [None]
  - SCAB [None]
  - MEMORY IMPAIRMENT [None]
  - DERMATILLOMANIA [None]
  - HEADACHE [None]
  - HALLUCINATION, AUDITORY [None]
  - NERVOUS SYSTEM DISORDER [None]
  - ACCIDENTAL OVERDOSE [None]
  - COMA [None]
  - TREMOR [None]
  - INCONTINENCE [None]
  - LOSS OF CONSCIOUSNESS [None]
  - OFF LABEL USE [None]
  - SOMNAMBULISM [None]
